FAERS Safety Report 8250583-9 (Version None)
Quarter: 2012Q2

REPORT INFORMATION
  Report Type: 
  Country: None (occurrence: None)
  Receive Date: 20120402
  Receipt Date: 20120402
  Transmission Date: 20120825
  Serious: Yes (Hospitalization, Other)
  Sender: FDA-Public Use
  Company Number: None

PATIENT
  Age: 9 Month
  Sex: Female
  Weight: 8.6182 kg

DRUGS (2)
  1. SUBOXONE STRIP [Concomitant]
  2. SUBOXONE [Suspect]

REACTIONS (5)
  - ACCIDENTAL DRUG INTAKE BY CHILD [None]
  - MYDRIASIS [None]
  - LOSS OF CONSCIOUSNESS [None]
  - PRODUCT PHYSICAL ISSUE [None]
  - INCORRECT PRODUCT STORAGE [None]
